FAERS Safety Report 5052503-7 (Version None)
Quarter: 2006Q3

REPORT INFORMATION
  Report Type: 
  Country: None (occurrence: None)
  Receive Date: 20060713
  Receipt Date: 20060713
  Transmission Date: 20061208
  Serious: Yes (Life-Threatening, Hospitalization, Disabling, Other)
  Sender: FDA-Public Use
  Company Number: None

PATIENT
  Age: 50 Year
  Sex: Male
  Weight: 83.0083 kg

DRUGS (2)
  1. CORDIS CYPHER STENT   JOHNSON AND JOHNSON [Suspect]
     Dosage: INTRACARDIA
     Route: 016
     Dates: start: 20040505, end: 20060711
  2. CORDIS CYPHER STENT   JOHNSON AND JOHNSON [Suspect]
     Dosage: INTRACARDIA
     Route: 016
     Dates: start: 20050128, end: 20060711

REACTIONS (10)
  - ANAPHYLACTIC SHOCK [None]
  - ANGINA PECTORIS [None]
  - ASTHENIA [None]
  - DRUG IMPLANT REJECTION [None]
  - DYSPHAGIA [None]
  - IMMUNE SYSTEM DISORDER [None]
  - NAUSEA [None]
  - POSTOPERATIVE FEVER [None]
  - PRURITUS [None]
  - URTICARIA [None]
